FAERS Safety Report 8796034 (Version 2)
Quarter: 2012Q4

REPORT INFORMATION
  Report Type: 
  Country: NO (occurrence: NO)
  Receive Date: 20120919
  Receipt Date: 20121203
  Transmission Date: 20130627
  Serious: Yes (Disabling, Other)
  Sender: FDA-Public Use
  Company Number: NO-ABBOTT-12P-122-0951065-00

PATIENT
  Sex: Male

DRUGS (8)
  1. INFLUENZA VACCINE [Suspect]
     Indication: H1N1 INFLUENZA
     Route: 065
     Dates: start: 2010, end: 2010
  2. INFLUENZA VACCINE [Suspect]
     Indication: IMMUNISATION
  3. VAXIGRIP [Suspect]
     Indication: H1N1 INFLUENZA
     Dates: start: 2010
  4. CALCIGRAN [Concomitant]
     Indication: PRODUCT USED FOR UNKNOWN INDICATION
  5. ACLASTA [Concomitant]
     Indication: PRODUCT USED FOR UNKNOWN INDICATION
  6. BICALUTAMIDE [Concomitant]
     Indication: PRODUCT USED FOR UNKNOWN INDICATION
  7. BETOLVEX [Concomitant]
     Indication: PRODUCT USED FOR UNKNOWN INDICATION
  8. ZANTAC [Concomitant]
     Indication: PRODUCT USED FOR UNKNOWN INDICATION

REACTIONS (7)
  - Narcolepsy [Unknown]
  - Cataplexy [Unknown]
  - Paralysis [Unknown]
  - Abnormal dreams [Unknown]
  - Quality of life decreased [Unknown]
  - Fall [Unknown]
  - Hypersomnia [Unknown]
